FAERS Safety Report 8119467-0 (Version None)
Quarter: 2012Q1

REPORT INFORMATION
  Report Type: 
  Country: None (occurrence: None)
  Receive Date: 20120207
  Receipt Date: 20120126
  Transmission Date: 20120608
  Serious: Yes (Hospitalization, Other)
  Sender: FDA-Public Use
  Company Number: PHHY2012BR007516

PATIENT
  Sex: Male

DRUGS (5)
  1. ATENOLOL [Concomitant]
     Indication: BLOOD PRESSURE
     Dosage: UNK UKN, QD (AT NIGHT)
     Dates: start: 20110904
  2. ENALAPRIL MALEATE [Concomitant]
     Indication: BLOOD CHOLESTEROL
     Dosage: 5 MG, QD (AFTER DINNER)
     Dates: start: 20110904
  3. DIOVAN [Suspect]
     Indication: BLOOD PRESSURE
     Dosage: 320 MG, UNK
     Route: 048
  4. SOMALGIN [Concomitant]
     Indication: CARDIAC REHABILITATION THERAPY
     Dosage: 100 MG, QD
     Dates: start: 20110904
  5. AMLODIPINE [Concomitant]
     Indication: BLOOD PRESSURE
     Dosage: UNK UKN, QD (IN THE MORNING)
     Dates: start: 20110904

REACTIONS (3)
  - HYPERTENSION [None]
  - HYPOTENSION [None]
  - VENOUS OCCLUSION [None]
